FAERS Safety Report 15402314 (Version 2)
Quarter: 2018Q3

REPORT INFORMATION
  Report Type: Report from Study
  Country: EE (occurrence: EE)
  Receive Date: 20180919
  Receipt Date: 20180928
  Transmission Date: 20181010
  Serious: Yes (Death, Life-Threatening, Hospitalization, Other)
  Sender: FDA-Public Use
  Company Number: EE-009507513-1809EST007019

PATIENT
  Age: 65 Year

DRUGS (3)
  1. KEYTRUDA [Suspect]
     Active Substance: PEMBROLIZUMAB
     Dosage: 200 MG, ONCE (STRENGTH: 25 MG/ML)
     Dates: start: 20180608, end: 20180608
  2. KEYTRUDA [Suspect]
     Active Substance: PEMBROLIZUMAB
     Dosage: 200 MG, ONCE (STRENGTH: 25 MG/ML)
     Dates: start: 20180730, end: 20180730
  3. KEYTRUDA [Suspect]
     Active Substance: PEMBROLIZUMAB
     Dosage: 200 MG, ONCE (STRENGTH: 25 MG/ML)
     Dates: start: 20180703, end: 20180703

REACTIONS (1)
  - Peripheral artery thrombosis [Fatal]

NARRATIVE: CASE EVENT DATE: 20180730
